FAERS Safety Report 21508625 (Version 1)
Quarter: 2022Q4

REPORT INFORMATION
  Report Type: Spontaneous
  Country: US (occurrence: US)
  Receive Date: 20221026
  Receipt Date: 20221026
  Transmission Date: 20230113
  Serious: Yes (Hospitalization, Other)
  Sender: FDA-Public Use
  Company Number: US-JUBILANT CADISTA PHARMACEUTICALS-2022JUB00372

PATIENT
  Age: 66 Year
  Sex: Female

DRUGS (4)
  1. PREDNISONE [Suspect]
     Active Substance: PREDNISONE
     Indication: Chronic obstructive pulmonary disease
     Dosage: GRADUALLY TAPERED
  2. PREDNISONE [Suspect]
     Active Substance: PREDNISONE
     Dosage: PROLONGED PREDNISONE TAPER
  3. OXYGEN [Concomitant]
     Active Substance: OXYGEN
     Dosage: 4 LITERS
     Route: 045
  4. OXYGEN [Concomitant]
     Active Substance: OXYGEN
     Dosage: 5 LITERS
     Route: 045

REACTIONS (2)
  - Strongyloidiasis [Recovered/Resolved]
  - Respiratory failure [Recovered/Resolved]
